FAERS Safety Report 7550937-X (Version None)
Quarter: 2011Q2

REPORT INFORMATION
  Report Type: 
  Country: None (occurrence: None)
  Receive Date: 20110609
  Receipt Date: 20110527
  Transmission Date: 20111010
  Serious: Yes (Death, Hospitalization)
  Sender: FDA-Public Use
  Company Number: TPA2011A02626

PATIENT
  Sex: Male

DRUGS (1)
  1. ULORIC [Suspect]

REACTIONS (1)
  - HEPATIC FAILURE [None]
